FAERS Safety Report 18271706 (Version 2)
Quarter: 2021Q2

REPORT INFORMATION
  Report Type: Spontaneous
  Country: IT (occurrence: IT)
  Receive Date: 20200916
  Receipt Date: 20210609
  Transmission Date: 20210717
  Serious: Yes (Hospitalization)
  Sender: FDA-Public Use
  Company Number: IT-SUN PHARMACEUTICAL INDUSTRIES LTD-2020RR-260983

PATIENT
  Age: 19 Year
  Sex: Female

DRUGS (5)
  1. TACHIPIRINA [Suspect]
     Active Substance: ACETAMINOPHEN
     Indication: DRUG ABUSE
     Dosage: 1 DOSAGE FORM, IN TOTAL
     Route: 048
     Dates: start: 20180305, end: 20180305
  2. DEBRUM 150 MG + 4 MG CAPSULE RIGIDE [Suspect]
     Active Substance: MEDAZEPAM\TRIMEBUTINE MALEATE
     Indication: DRUG ABUSE
     Dosage: 10 DOSAGE FORM, IN TOTAL
     Route: 048
     Dates: start: 20180305, end: 20180305
  3. PANTOPRAZOLE [Suspect]
     Active Substance: PANTOPRAZOLE
     Indication: DRUG ABUSE
     Dosage: 80 MILLIGRAM, IN TOTAL
     Route: 048
     Dates: start: 20180305, end: 20180305
  4. KEPPRA [Suspect]
     Active Substance: LEVETIRACETAM
     Indication: DRUG ABUSE
     Dosage: 10 DOSAGE FORM, IN TOTAL
     Route: 048
     Dates: start: 20180305, end: 20180305
  5. CITALOPRAM [Concomitant]
     Active Substance: CITALOPRAM HYDROBROMIDE
     Indication: DEPRESSION
     Dosage: 7 GTT DROPS, DAILY
     Route: 048

REACTIONS (3)
  - Depressed mood [Recovering/Resolving]
  - Vertigo [Recovering/Resolving]
  - Drug abuse [Recovering/Resolving]

NARRATIVE: CASE EVENT DATE: 20180305
